FAERS Safety Report 24686820 (Version 1)
Quarter: 2024Q4

REPORT INFORMATION
  Report Type: Report from Study
  Country: US (occurrence: US)
  Receive Date: 20241202
  Receipt Date: 20241202
  Transmission Date: 20250115
  Serious: Yes (Other)
  Sender: JAZZ
  Company Number: US-JAZZ PHARMACEUTICALS-2024-US-022039

PATIENT
  Sex: Male
  Weight: 22.7 kg

DRUGS (3)
  1. EPIDIOLEX [Suspect]
     Active Substance: CANNABIDIOL
     Indication: Product used for unknown indication
     Dosage: 200 MILLIGRAM, BID
     Route: 048
     Dates: start: 2017
  2. OXCARBAZEPINE [Concomitant]
     Active Substance: OXCARBAZEPINE
     Indication: Product used for unknown indication
     Dosage: UNK
  3. CLOBAZAM [Concomitant]
     Active Substance: CLOBAZAM
     Indication: Product used for unknown indication
     Dosage: UNK

REACTIONS (4)
  - Seizure [Unknown]
  - Cerebral disorder [Unknown]
  - Abdominal pain [Unknown]
  - Drug ineffective [Unknown]
